FAERS Safety Report 8601411-0 (Version None)
Quarter: 2012Q3

REPORT INFORMATION
  Report Type: 
  Country: None (occurrence: None)
  Receive Date: 20120817
  Receipt Date: 20120813
  Transmission Date: 20120928
  Serious: Yes (Other)
  Sender: FDA-Public Use
  Company Number: PHHY2012IL070679

PATIENT
  Sex: Female

DRUGS (3)
  1. ZOLEDRONOC ACID [Suspect]
     Indication: OSTEOPOROSIS
     Dosage: 5MG/100ML
     Route: 042
     Dates: start: 20120710
  2. ATENOLOL [Concomitant]
     Dosage: 50 MG, DAILY
     Route: 048
  3. VITAMIN D [Concomitant]

REACTIONS (6)
  - PYREXIA [None]
  - PANOPHTHALMITIS [None]
  - JOINT SWELLING [None]
  - CHILLS [None]
  - ARTHRALGIA [None]
  - ERYTHEMA [None]
